FAERS Safety Report 8974401 (Version 1)
Quarter: 2012Q4

REPORT INFORMATION
  Report Type: Spontaneous
  Country: GB (occurrence: None)
  Receive Date: 20121213
  Receipt Date: 20121213
  Transmission Date: 20130627
  Serious: Yes (Other)
  Sender: FDA-Public Use
  Company Number: 2012-21957

PATIENT
  Age: 35 Year
  Sex: Female
  Weight: 78 kg

DRUGS (5)
  1. MIRTAZAPINE (MIRTAZAPINE) [Suspect]
     Indication: DEPRESSION
     Route: 048
     Dates: start: 20120921, end: 20121021
  2. SERTRALINE HYDROCHLORIDE [Suspect]
     Indication: DEPRESSION
     Route: 048
     Dates: start: 20120828, end: 20121014
  3. ECHINACEA (ECHINACEA PURPUREA) [Concomitant]
  4. SPIRULINA (SPIRULINA SPP.) [Concomitant]
  5. ANTIOXIDANT (ASCORBIC ACID, RETINOL, SELENIUM, TOCOPHERYL ACETATE) [Concomitant]

REACTIONS (2)
  - Drug-induced liver injury [None]
  - Inflammation [None]
